FAERS Safety Report 6403433-7 (Version None)
Quarter: 2009Q4

REPORT INFORMATION
  Report Type: 
  Country: None (occurrence: None)
  Receive Date: 20091016
  Receipt Date: 20091006
  Transmission Date: 20100525
  Serious: Yes (Other)
  Sender: FDA-Public Use
  Company Number: CA-JNJFOC-20091002106

PATIENT
  Sex: Female
  Weight: 65 kg

DRUGS (2)
  1. REMICADE [Suspect]
     Dosage: WEEK 2
     Route: 042
     Dates: start: 20090626, end: 20090709
  2. REMICADE [Suspect]
     Indication: PSORIASIS
     Dosage: WEEK 0
     Route: 042
     Dates: start: 20090626, end: 20090709

REACTIONS (1)
  - LUPUS-LIKE SYNDROME [None]
